FAERS Safety Report 8650347 (Version 2)
Quarter: 2014Q2

REPORT INFORMATION
  Report Type: Report from Study
  Country: AU (occurrence: AU)
  Receive Date: 20120705
  Receipt Date: 20140615
  Transmission Date: 20141212
  Serious: Yes (Hospitalization, Other)
  Sender: FDA-Public Use
  Company Number: PHHY2012AU057194

PATIENT
  Sex: Male

DRUGS (1)
  1. CLOZARIL [Suspect]
     Dosage: 200 MG, UNK
     Dates: start: 20041012

REACTIONS (5)
  - Skin lesion [Unknown]
  - Malignant melanoma [Unknown]
  - Abdominal neoplasm [Unknown]
  - Metastases to lung [Unknown]
  - Liver disorder [Unknown]
